FAERS Safety Report 9263925 (Version 3)
Quarter: 2014Q2

REPORT INFORMATION
  Report Type: Spontaneous
  Country: IT (occurrence: IT)
  Receive Date: 20130430
  Receipt Date: 20140421
  Transmission Date: 20141212
  Serious: Yes (Hospitalization)
  Sender: FDA-Public Use
  Company Number: IT-ACTAVIS-2013-07246

PATIENT
  Age: 46 Year
  Sex: Female

DRUGS (2)
  1. IBUPROFEN (UNKNOWN) [Suspect]
     Indication: DRUG ABUSE
     Dosage: 50 MG, TOTAL
     Route: 048
     Dates: start: 20130302, end: 20130302
  2. TAVOR                              /00273201/ [Suspect]
     Indication: DRUG ABUSE
     Dosage: 2400 MG, TOTAL
     Route: 048
     Dates: start: 20130302, end: 20130302

REACTIONS (2)
  - Drug abuse [Recovered/Resolved]
  - Psychomotor skills impaired [Recovered/Resolved]
